FAERS Safety Report 8341673 (Version 2)
Quarter: 2013Q2

REPORT INFORMATION
  Report Type: Spontaneous
  Country: US (occurrence: None)
  Receive Date: 20111202
  Receipt Date: 20121203
  Transmission Date: 20140414
  Serious: Yes (Hospitalization)
  Sender: FDA-Public Use
  Company Number: 2011SP031789

PATIENT
  Age: 48 Year
  Sex: Female
  Weight: 86.2 kg

DRUGS (2)
  1. NUVARING [Suspect]
     Indication: ENDOMETRIOSIS
     Dates: start: 200908, end: 20091014
  2. NUVARING [Suspect]
     Indication: MENOPAUSAL SYMPTOMS
     Dates: start: 200908, end: 20091014

REACTIONS (8)
  - DEEP VEIN THROMBOSIS [None]
  - Thrombophlebitis superficial [None]
  - Hypercoagulation [None]
  - Hypothyroidism [None]
  - Vomiting [None]
  - Off label use [None]
  - Headache [None]
  - Nausea [None]
